FAERS Safety Report 6594733-9 (Version None)
Quarter: 2010Q1

REPORT INFORMATION
  Report Type: 
  Country: None (occurrence: None)
  Receive Date: 20100222
  Receipt Date: 20100217
  Transmission Date: 20100710
  Serious: Yes (Hospitalization)
  Sender: FDA-Public Use
  Company Number: BE-WYE-G03515509

PATIENT
  Age: 45 Year
  Sex: Male

DRUGS (2)
  1. REFACTO [Suspect]
     Indication: KNEE ARTHROPLASTY
     Dosage: 500 IU
  2. REFACTO [Suspect]
     Dosage: 1000 IU

REACTIONS (2)
  - FACTOR VIII INHIBITION [None]
  - POST PROCEDURAL HAEMORRHAGE [None]
